FAERS Safety Report 16415509 (Version 2)
Quarter: 2019Q4

REPORT INFORMATION
  Report Type: Spontaneous
  Country: US (occurrence: US)
  Receive Date: 20190611
  Receipt Date: 20191118
  Transmission Date: 20200122
  Serious: No
  Sender: FDA-Public Use
  Company Number: US-SA-2019SA154046

PATIENT
  Age: 40 Year
  Sex: Female

DRUGS (3)
  1. DUPIXENT [Suspect]
     Active Substance: DUPILUMAB
     Indication: BRONCHIECTASIS
  2. DUPIXENT [Suspect]
     Active Substance: DUPILUMAB
     Indication: CHRONIC OBSTRUCTIVE PULMONARY DISEASE
  3. DUPIXENT [Suspect]
     Active Substance: DUPILUMAB
     Indication: ASTHMA
     Dosage: 300 MG, QOW
     Route: 058
     Dates: start: 20190327

REACTIONS (3)
  - Eye infection [Unknown]
  - Product use in unapproved indication [Unknown]
  - Conjunctivitis [Unknown]

NARRATIVE: CASE EVENT DATE: 2019
